FAERS Safety Report 12886029 (Version 3)
Quarter: 2017Q1

REPORT INFORMATION
  Report Type: Spontaneous
  Country: US (occurrence: US)
  Receive Date: 20161026
  Receipt Date: 20170103
  Transmission Date: 20170428
  Serious: Yes (Hospitalization)
  Sender: FDA-Public Use
  Company Number: US-SA-2016SA192643

PATIENT
  Age: 11 Year
  Sex: Male
  Weight: 43.54 kg

DRUGS (14)
  1. LEXAPRO [Concomitant]
     Active Substance: ESCITALOPRAM OXALATE
     Dosage: EVERY EVENING
     Route: 048
     Dates: start: 20161213
  2. DIPHENHYDRAMINE. [Concomitant]
     Active Substance: DIPHENHYDRAMINE
     Dosage: DOSE:2.5 MILLIGRAM(S)/MILLILITRE
     Route: 048
     Dates: start: 20160913
  3. HUMALOG [Concomitant]
     Active Substance: INSULIN LISPRO
     Dosage: I UNIT SUBCUTANEOUSLY AS DIRECTED
     Route: 058
     Dates: start: 20150219
  4. LIDOCAINE/PRILOCAINE [Concomitant]
     Route: 061
     Dates: start: 20160913
  5. NORMAL SALINE [Concomitant]
     Active Substance: SODIUM CHLORIDE
     Route: 042
     Dates: start: 20160913
  6. EPIPEN [Concomitant]
     Active Substance: EPINEPHRINE
     Route: 030
     Dates: start: 20160913
  7. HUMALOG [Concomitant]
     Active Substance: INSULIN LISPRO
     Route: 058
     Dates: start: 20161213
  8. LANTUS [Concomitant]
     Active Substance: INSULIN GLARGINE
     Dosage: 7 UNITS SUBCUTANEOUSLY DOSE:7 UNIT(S)
     Route: 058
     Dates: start: 20150219
  9. CEREZYME [Suspect]
     Active Substance: IMIGLUCERASE
     Indication: GAUCHER^S DISEASE
     Dosage: DOSE:68.59 UNIT(S)/KILOGRAM BODYWEIGHT
     Route: 041
     Dates: start: 20131219
  10. LEXAPRO [Concomitant]
     Active Substance: ESCITALOPRAM OXALATE
     Dosage: EVERY EVENING
     Route: 048
     Dates: start: 20160926
  11. LANTUS [Concomitant]
     Active Substance: INSULIN GLARGINE
     Route: 058
     Dates: start: 20161213
  12. HEPARIN [Concomitant]
     Active Substance: HEPARIN SODIUM
     Dosage: DOSE:100 INTERNATIONAL UNIT(S)/MILLILITRE
     Route: 042
     Dates: start: 20160913
  13. CEREZYME [Suspect]
     Active Substance: IMIGLUCERASE
     Indication: GAUCHER^S DISEASE
     Dosage: DOSE:68.59 UNIT(S)/KILOGRAM BODYWEIGHT
     Route: 041
     Dates: start: 20131219
  14. L-M-X [Concomitant]
     Route: 061
     Dates: start: 20160913

REACTIONS (2)
  - Diabetic ketoacidosis [Unknown]
  - Blood glucose abnormal [Unknown]
